FAERS Safety Report 8398576-5 (Version None)
Quarter: 2012Q2

REPORT INFORMATION
  Report Type: 
  Country: None (occurrence: None)
  Receive Date: 20120531
  Receipt Date: 20120521
  Transmission Date: 20120825
  Serious: Yes (Other)
  Sender: FDA-Public Use
  Company Number: JP-CELGENEUS-087-21880-11043307

PATIENT
  Sex: Female

DRUGS (21)
  1. BISOPROLOL FUMARATE [Concomitant]
     Indication: HYPERTENSION
     Route: 048
     Dates: start: 20110206
  2. LENDORMIN [Concomitant]
     Indication: INSOMNIA
     Route: 048
     Dates: start: 20110206
  3. DEXAMETHASONE ACETATE [Suspect]
     Dosage: 5.7143 MILLIGRAM
     Route: 048
     Dates: start: 20110330, end: 20110412
  4. COTRIM [Concomitant]
     Route: 048
     Dates: start: 20110427
  5. SODIUM BICARBONATE [Concomitant]
     Indication: PROPHYLAXIS
     Route: 041
     Dates: start: 20110228, end: 20110304
  6. REVLIMID [Suspect]
     Dosage: 10 MILLIGRAM
     Route: 048
     Dates: start: 20110511, end: 20110524
  7. ASPIRIN [Concomitant]
     Indication: ANGINA PECTORIS
     Route: 048
     Dates: start: 20080101
  8. ISOSORBIDE MONONITRATE [Concomitant]
     Indication: ANGINA PECTORIS
     Route: 048
     Dates: start: 20080101
  9. REVLIMID [Suspect]
     Indication: MULTIPLE MYELOMA
     Dosage: 15 MILLIGRAM
     Route: 048
     Dates: start: 20110228, end: 20110320
  10. REVLIMID [Suspect]
     Dosage: 10 MILLIGRAM
     Route: 048
     Dates: start: 20110405, end: 20110411
  11. DEXAMETHASONE ACETATE [Suspect]
     Indication: MULTIPLE MYELOMA
     Dosage: 5.7143 MILLIGRAM
     Route: 048
     Dates: start: 20110228, end: 20110327
  12. ZOMETA [Concomitant]
     Indication: MULTIPLE MYELOMA
     Route: 041
     Dates: start: 20110228, end: 20110228
  13. COTRIM [Concomitant]
     Indication: PROPHYLAXIS
     Route: 048
     Dates: start: 20110226, end: 20110426
  14. LANSOPRAZOLE [Concomitant]
     Indication: PROPHYLAXIS
     Route: 048
     Dates: start: 20110206
  15. DEXAMETHASONE ACETATE [Suspect]
     Dosage: 2.8571 MILLIGRAM
     Route: 048
     Dates: start: 20110511, end: 20110524
  16. ZOMETA [Concomitant]
     Route: 041
     Dates: start: 20110330, end: 20110330
  17. MAGMITT [Concomitant]
     Indication: CONSTIPATION
     Route: 048
     Dates: start: 20110206
  18. BASEN [Concomitant]
     Indication: PROPHYLAXIS
     Route: 048
     Dates: start: 20110325
  19. REVLIMID [Suspect]
     Dosage: 15 MILLIGRAM
     Route: 048
     Dates: start: 20110330, end: 20110404
  20. ZOMETA [Concomitant]
     Route: 041
     Dates: start: 20110607, end: 20110607
  21. ITRACONAZOLE [Concomitant]
     Indication: PROPHYLAXIS
     Route: 048
     Dates: start: 20110226

REACTIONS (6)
  - NASOPHARYNGITIS [None]
  - BLOOD GLUCOSE INCREASED [None]
  - LIVER DISORDER [None]
  - NEUROPATHY PERIPHERAL [None]
  - OEDEMA PERIPHERAL [None]
  - NEUTROPHIL COUNT DECREASED [None]
